FAERS Safety Report 10528349 (Version 2)
Quarter: 2015Q2

REPORT INFORMATION
  Report Type: Spontaneous
  Country: US (occurrence: US)
  Receive Date: 20141020
  Receipt Date: 20150612
  Transmission Date: 20150821
  Serious: Yes (Hospitalization)
  Sender: FDA-Public Use
  Company Number: US-BAYER-2014-155006

PATIENT
  Age: 26 Year
  Sex: Female
  Weight: 53.97 kg

DRUGS (2)
  1. NUVARING [Concomitant]
     Active Substance: ETHINYL ESTRADIOL\ETONOGESTREL
  2. MIRENA [Suspect]
     Active Substance: LEVONORGESTREL
     Indication: CONTRACEPTION
     Dosage: 20 MCG/24HR, CONT
     Route: 015
     Dates: start: 20060609, end: 20080626

REACTIONS (7)
  - Device difficult to use [None]
  - Anxiety [None]
  - Uterine perforation [None]
  - Injury [None]
  - Stress [None]
  - Pain [None]
  - Abdominal discomfort [None]

NARRATIVE: CASE EVENT DATE: 200806
